FAERS Safety Report 5162851-8 (Version None)
Quarter: 2006Q4

REPORT INFORMATION
  Report Type: 
  Country: None (occurrence: None)
  Receive Date: 20061201
  Receipt Date: 20020204
  Transmission Date: 20070319
  Serious: Yes (Hospitalization)
  Sender: FDA-Public Use
  Company Number: FR-GLAXOSMITHKLINE-B0135483B

PATIENT
  Sex: Female
  Weight: 3.1 kg

DRUGS (7)
  1. RETROVIR [Suspect]
     Indication: ANTIVIRAL PROPHYLAXIS
     Route: 042
  2. RETROVIR [Suspect]
     Route: 042
     Dates: start: 20010608, end: 20010608
  3. DIDANOSINE [Suspect]
     Indication: HIV INFECTION
     Dosage: 250MG PER DAY
     Route: 048
  4. NELFINAVIR MESYLATE [Suspect]
     Indication: HIV INFECTION
     Dosage: 1250MG TWICE PER DAY
     Route: 048
  5. STAVUDINE [Suspect]
     Indication: HIV INFECTION
     Dosage: 30MG TWICE PER DAY
     Route: 048
  6. STAVUDINE [Concomitant]
     Indication: ANTIVIRAL PROPHYLAXIS
     Route: 048
  7. IRON [Concomitant]
     Route: 065

REACTIONS (12)
  - BLOOD LACTATE DEHYDROGENASE INCREASED [None]
  - CHONDROMATOSIS [None]
  - CONGENITAL CYSTIC KIDNEY DISEASE [None]
  - DRUG EXPOSURE DURING PREGNANCY [None]
  - HYPERLACTACIDAEMIA [None]
  - HYPERTRIGLYCERIDAEMIA [None]
  - LACTATE PYRUVATE RATIO INCREASED [None]
  - MACROCYTOSIS [None]
  - METABOLIC DISORDER [None]
  - NEONATAL DISORDER [None]
  - NEUTROPENIA [None]
  - RENAL DYSPLASIA [None]
